FAERS Safety Report 8070391-1 (Version None)
Quarter: 2012Q1

REPORT INFORMATION
  Report Type: 
  Country: None (occurrence: None)
  Receive Date: 20120125
  Receipt Date: 20120117
  Transmission Date: 20120608
  Serious: Yes (Hospitalization)
  Sender: FDA-Public Use
  Company Number: CA-ROCHE-1032934

PATIENT
  Sex: Male

DRUGS (7)
  1. TIAZAC [Concomitant]
  2. IRON SULFATETHIAMIN COMPOUND TAB [Concomitant]
  3. LUCENTIS [Suspect]
     Indication: PRODUCT USED FOR UNKNOWN INDICATION
     Route: 050
     Dates: start: 20110603
  4. LIPITOR [Concomitant]
  5. ASPIRIN [Concomitant]
  6. IMDUR [Concomitant]
  7. PLAVIX [Concomitant]

REACTIONS (1)
  - INFARCTION [None]
